FAERS Safety Report 14092098 (Version 1)
Quarter: 2017Q4

REPORT INFORMATION
  Report Type: Spontaneous
  Country: US (occurrence: US)
  Receive Date: 20171016
  Receipt Date: 20171016
  Transmission Date: 20180321
  Serious: No
  Sender: FDA-Public Use
  Company Number: US-PFIZER INC-2017443844

PATIENT
  Age: 60 Year
  Sex: Female

DRUGS (1)
  1. IBRANCE [Suspect]
     Active Substance: PALBOCICLIB
     Indication: BREAST CANCER FEMALE
     Dosage: 125 MG, CYCLIC (DAYS 1-21 OF 28 DAYS CYCLE/DAILY)
     Route: 048

REACTIONS (5)
  - Cough [Unknown]
  - Nausea [Unknown]
  - Alopecia [Unknown]
  - Rash [Unknown]
  - Vomiting [Unknown]
